FAERS Safety Report 4933226-9 (Version None)
Quarter: 2006Q1

REPORT INFORMATION
  Report Type: 
  Country: None (occurrence: None)
  Receive Date: 20060306
  Receipt Date: 20050607
  Transmission Date: 20060701
  Serious: Yes (Hospitalization)
  Sender: FDA-Public Use
  Company Number: US-MERCK-0506USA01062

PATIENT
  Age: 50 Year
  Sex: Male
  Weight: 108 kg

DRUGS (1)
  1. VIOXX [Suspect]
     Route: 048
     Dates: start: 19990501, end: 20040901

REACTIONS (7)
  - ACUTE CORONARY SYNDROME [None]
  - ANGINA UNSTABLE [None]
  - BACK DISORDER [None]
  - CORONARY ARTERY DISEASE [None]
  - INTERVERTEBRAL DISC PROTRUSION [None]
  - MYOCARDIAL INFARCTION [None]
  - RADICULOPATHY [None]
